FAERS Safety Report 7627345-6 (Version None)
Quarter: 2011Q3

REPORT INFORMATION
  Report Type: 
  Country: None (occurrence: None)
  Receive Date: 20110721
  Receipt Date: 20110708
  Transmission Date: 20111222
  Serious: Yes (Hospitalization)
  Sender: FDA-Public Use
  Company Number: US-ELI_LILLY_AND_COMPANY-US201105004281

PATIENT
  Sex: Female

DRUGS (15)
  1. ZOFRAN [Concomitant]
  2. FORTEO [Suspect]
     Dosage: 20 UG, QD
     Route: 065
  3. IBUPROFEN [Concomitant]
  4. NIACIN [Concomitant]
  5. FORTEO [Suspect]
     Dosage: 20 UG, QD
     Dates: start: 20110707
  6. PERCOCET [Concomitant]
  7. TYLENOL                                 /SCH/ [Concomitant]
  8. FLAGYL [Concomitant]
  9. LISINOPRIL [Concomitant]
  10. CIPROFLOXACIN HCL [Concomitant]
  11. NEXIUM [Concomitant]
  12. LEVOTHYROXINE SODIUM [Concomitant]
  13. FORTEO [Suspect]
     Indication: OSTEOPOROSIS
     Dosage: 20 UG, QD
     Route: 065
     Dates: start: 20110420
  14. TOPROL-XL [Concomitant]
  15. SIMVASTATIN [Concomitant]

REACTIONS (7)
  - ARTHRALGIA [None]
  - MUSCULOSKELETAL PAIN [None]
  - BONE PAIN [None]
  - TOOTHACHE [None]
  - PAIN IN EXTREMITY [None]
  - GALLBLADDER OPERATION [None]
  - ARTHRITIS [None]
